FAERS Safety Report 8436959 (Version 4)
Quarter: 2013Q1

REPORT INFORMATION
  Report Type: Spontaneous
  Country: None (occurrence: None)
  Receive Date: 20120217
  Receipt Date: 20130329
  Transmission Date: 20140127
  Serious: Yes (Other)
  Sender: FDA-Public Use
  Company Number: AUR-APL-2012-00892

PATIENT
  Age: 37 Year
  Sex: Female
  Weight: 85 kg

DRUGS (4)
  1. CITALOPRAM HYDROBROMIDE [Suspect]
     Indication: PRODUCT USED FOR UNKNOWN INDICATION
     Dates: start: 20120130
  2. FLUOXETINE [Suspect]
     Indication: HYPERPROLACTINAEMIA
     Dosage: 40 MG (40 MG, 1 IN 1 D), 20 MG (20 MG, 1 IN 1 D)
     Route: 048
     Dates: start: 20110818, end: 20111130
  3. CLOBETASONE BUTYRATE (CLOBETASONE BUTYRATE) [Concomitant]
  4. DERMOL [Concomitant]

REACTIONS (3)
  - Hyperprolactinaemia [None]
  - Galactorrhoea [None]
  - Amenorrhoea [None]
